FAERS Safety Report 6743898-4 (Version None)
Quarter: 2010Q2

REPORT INFORMATION
  Report Type: 
  Country: None (occurrence: None)
  Receive Date: 20100527
  Receipt Date: 20100519
  Transmission Date: 20101027
  Serious: Yes (Other)
  Sender: FDA-Public Use
  Company Number: US-AMGEN-QUU411173

PATIENT
  Age: 75 Year
  Sex: Female

DRUGS (4)
  1. ARANESP [Suspect]
     Indication: RENAL FAILURE CHRONIC
     Dates: start: 20080101, end: 20090101
  2. EPOGEN [Suspect]
     Indication: RENAL FAILURE CHRONIC
     Dates: start: 20090101, end: 20100325
  3. PLAVIX [Concomitant]
  4. COZAAR [Concomitant]

REACTIONS (4)
  - BREAST PAIN [None]
  - COUGH [None]
  - RASH PUSTULAR [None]
  - SKIN REACTION [None]
